FAERS Safety Report 18099383 (Version 21)
Quarter: 2022Q2

REPORT INFORMATION
  Report Type: Other
  Country: GB (occurrence: GB)
  Receive Date: 20200731
  Receipt Date: 20220623
  Transmission Date: 20220720
  Serious: Yes (Death, Life-Threatening, Hospitalization, Disabling, Other)
  Sender: FDA-Public Use
  Company Number: GB-MACLEODS PHARMACEUTICALS US LTD-MAC2020027492

PATIENT

DRUGS (93)
  1. IRBESARTAN [Suspect]
     Active Substance: IRBESARTAN
     Indication: Abdominal discomfort
     Dosage: 150 MILLIGRAM, QD
     Route: 048
     Dates: start: 20100912
  2. IRBESARTAN [Suspect]
     Active Substance: IRBESARTAN
     Dosage: 150 MILLIGRAM, QD
     Route: 048
     Dates: start: 20100917
  3. TAMSULOSIN [Suspect]
     Active Substance: TAMSULOSIN
     Indication: Product used for unknown indication
     Dosage: 400 MICROGRAM, TAMSULOSIN HYDROCHLORIDE
     Route: 065
  4. OMEPRAZOLE [Suspect]
     Active Substance: OMEPRAZOLE
     Indication: Radiotherapy
     Dosage: 12 MILLIGRAM, BID, Q12H
     Route: 048
  5. OMEPRAZOLE [Suspect]
     Active Substance: OMEPRAZOLE
     Indication: Abdominal discomfort
     Dosage: 20 MILLIGRAM, BID, Q12H (40 MG ONCE A DAY)
     Route: 048
  6. OMEPRAZOLE [Suspect]
     Active Substance: OMEPRAZOLE
     Dosage: 20 MILLIGRAM
     Route: 048
  7. OMEPRAZOLE [Suspect]
     Active Substance: OMEPRAZOLE
     Dosage: 20 MILLIGRAM, BID, EVERY 12H, (40 MG, QD)
     Route: 048
  8. OMEPRAZOLE [Suspect]
     Active Substance: OMEPRAZOLE
     Dosage: 20 MILLIGRAM, BID, EVERY 12H (40 MG)
     Route: 048
  9. OMEPRAZOLE [Suspect]
     Active Substance: OMEPRAZOLE
     Dosage: 20 MILLIGRAM
     Route: 048
  10. OMEPRAZOLE [Suspect]
     Active Substance: OMEPRAZOLE
     Dosage: UNK
     Route: 065
  11. OMEPRAZOLE [Suspect]
     Active Substance: OMEPRAZOLE
     Dosage: 400 MILLIGRAM
     Route: 048
  12. OMEPRAZOLE [Suspect]
     Active Substance: OMEPRAZOLE
     Dosage: 20 MILLIGRAM
     Route: 048
  13. OMEPRAZOLE [Suspect]
     Active Substance: OMEPRAZOLE
     Dosage: 20 MILLIGRAM, BID, EVERY 12H
     Route: 048
  14. OMEPRAZOLE [Suspect]
     Active Substance: OMEPRAZOLE
     Dosage: 20 MILLIGRAM, BID (40 MG)
     Route: 048
  15. OMEPRAZOLE [Suspect]
     Active Substance: OMEPRAZOLE
     Dosage: 20 MILLIGRAM, BID (40 MG)
     Route: 048
  16. OMEPRAZOLE [Suspect]
     Active Substance: OMEPRAZOLE
     Dosage: 20 MILLIGRAM, BID (40 MG)
     Route: 048
  17. OMEPRAZOLE [Suspect]
     Active Substance: OMEPRAZOLE
     Dosage: 24 MILLIGRAM, QD (12 MILLIGRAM, BID)
     Route: 048
  18. OMEPRAZOLE [Suspect]
     Active Substance: OMEPRAZOLE
     Dosage: 400 MICROGRAM, QD  CUTANEOUS FOAM
     Route: 048
  19. OMEPRAZOLE [Suspect]
     Active Substance: OMEPRAZOLE
     Dosage: 20 MILLIGRAM, BID (20 MG, Q12H (20 MG, BID)
     Route: 048
  20. OMEPRAZOLE [Suspect]
     Active Substance: OMEPRAZOLE
     Dosage: 12 MILLIGRAM, BID, Q12H (24 MG, QD), CUTANEOUS FOAM
     Route: 048
  21. OMEPRAZOLE [Suspect]
     Active Substance: OMEPRAZOLE
     Dosage: 400 MICROGRAM
     Route: 048
  22. OMEPRAZOLE [Suspect]
     Active Substance: OMEPRAZOLE
     Dosage: 40 MILLIGRAM, QD, 20 MILLIGRAM, BID, (20 MG, Q12H (20 MG, BID) (CUTANEOUS FOAM)
     Route: 048
  23. OMEPRAZOLE [Suspect]
     Active Substance: OMEPRAZOLE
     Dosage: 20 MILLIGRAM, BID (40 MG, QD)
     Route: 048
  24. OMEPRAZOLE [Suspect]
     Active Substance: OMEPRAZOLE
     Dosage: 20 MILLIGRAM, BID
     Route: 048
  25. OMEPRAZOLE [Suspect]
     Active Substance: OMEPRAZOLE
     Dosage: UNK
  26. CARBAMAZEPINE [Suspect]
     Active Substance: CARBAMAZEPINE
     Indication: Product used for unknown indication
     Dosage: 750 MILLIGRAM, QD
     Route: 048
  27. CLOZARIL [Suspect]
     Active Substance: CLOZAPINE
     Indication: Schizophrenia
     Dosage: UNK (TABLET)
     Route: 048
     Dates: start: 20090403
  28. CLOZARIL [Suspect]
     Active Substance: CLOZAPINE
     Dosage: 400 MILLIGRAM (STOP DATE MAY 2020)
     Route: 048
     Dates: start: 20090403
  29. CLOZARIL [Suspect]
     Active Substance: CLOZAPINE
     Dosage: 400 MILLIGRAM
     Route: 048
     Dates: start: 20200403
  30. CLOZARIL [Suspect]
     Active Substance: CLOZAPINE
     Dosage: 8 MILLIGRAM, QD ONCE A DAY (8 MG, QD) (STOP DATE MAY 2020)
     Route: 048
     Dates: start: 20200521
  31. CLOZARIL [Suspect]
     Active Substance: CLOZAPINE
     Dosage: 8 MILLIGRAM, QD ONCE A DAY (8 MG, QD) (STOP DATE MAY 2020)
     Route: 048
  32. CLOZARIL [Suspect]
     Active Substance: CLOZAPINE
     Dosage: UNK, TABLET
     Route: 048
     Dates: start: 20200403
  33. CLOZARIL [Suspect]
     Active Substance: CLOZAPINE
     Dosage: 20 MILLIGRAM, BID (40 MG, QD)
     Route: 048
  34. CLOZARIL [Suspect]
     Active Substance: CLOZAPINE
     Dosage: 20 MILLIGRAM
     Route: 048
  35. CLOZARIL [Suspect]
     Active Substance: CLOZAPINE
     Dosage: 8 MILLIGRAM, QD ONCE A DAY (8 MG, QD) (STOP DATE MAY 2020)
     Route: 048
  36. CLOZARIL [Suspect]
     Active Substance: CLOZAPINE
     Dosage: UNK, TABLET
     Route: 048
     Dates: start: 20090403
  37. CLOZARIL [Suspect]
     Active Substance: CLOZAPINE
     Dosage: 2 MILLIGRAM, QD (START DATE: MAY 2020)
     Route: 048
     Dates: end: 20200528
  38. CARBAMAZEPINE [Suspect]
     Active Substance: CARBAMAZEPINE
     Indication: Rheumatoid arthritis
     Dosage: UNK, DRUG ABUSE
     Route: 065
  39. SULFAGUANIDINE [Suspect]
     Active Substance: SULFAGUANIDINE
     Indication: Product used for unknown indication
     Dosage: 750 MILLIGRAM
     Route: 048
  40. DEXAMETHASONE [Suspect]
     Active Substance: DEXAMETHASONE
     Indication: Radiotherapy to pharynx
     Dosage: 2 MILLIGRAM, QD, ORAL SOLUTION
     Route: 048
     Dates: start: 20200521, end: 20200528
  41. DEXAMETHASONE [Suspect]
     Active Substance: DEXAMETHASONE
     Indication: Radiotherapy
     Dosage: 8 MILLIGRAM, QD (STOP DATE: MAY 2020), ORAL SOLUTION
     Route: 048
     Dates: start: 20200515
  42. DEXAMETHASONE [Suspect]
     Active Substance: DEXAMETHASONE
     Dosage: 8 MILLIGRAM, QD (START DATE: MAY 2020), ORAL SOLUTION
     Route: 048
     Dates: end: 20200528
  43. DEXAMETHASONE [Suspect]
     Active Substance: DEXAMETHASONE
     Dosage: 8 MILLIGRAM, QD (STOP DATE: MAY 2020), ORAL SOLUTION
     Route: 048
     Dates: start: 20200521
  44. DEXAMETHASONE [Suspect]
     Active Substance: DEXAMETHASONE
     Dosage: 8 MILLIGRAM
     Route: 048
     Dates: start: 20200528
  45. DEXAMETHASONE [Suspect]
     Active Substance: DEXAMETHASONE
     Dosage: 8 MILLIGRAM
     Route: 048
  46. DEXAMETHASONE [Suspect]
     Active Substance: DEXAMETHASONE
     Dosage: 8 MILLIGRAM, QD, ORAL SOLUTION
     Route: 048
     Dates: start: 20200521, end: 20200528
  47. DEXAMETHASONE [Suspect]
     Active Substance: DEXAMETHASONE
     Dosage: 2 MILLIGRAM, QD
     Route: 048
     Dates: start: 20200521, end: 20200528
  48. DEXAMETHASONE [Suspect]
     Active Substance: DEXAMETHASONE
     Dosage: 10 MILLIGRAM, ORAL SOLUTION
     Route: 048
     Dates: start: 20200521, end: 20200528
  49. DEXAMETHASONE [Suspect]
     Active Substance: DEXAMETHASONE
     Dosage: 2 MILLIGRAM
     Route: 048
     Dates: start: 20200528
  50. DEXAMETHASONE [Suspect]
     Active Substance: DEXAMETHASONE
     Dosage: UNK
     Route: 065
  51. SIMVASTATIN [Suspect]
     Active Substance: SIMVASTATIN
     Indication: Product used for unknown indication
     Dosage: UNK
     Route: 065
  52. SIMVASTATIN [Suspect]
     Active Substance: SIMVASTATIN
     Dosage: 20 MILLIGRAM
     Route: 048
  53. SIMVASTATIN [Suspect]
     Active Substance: SIMVASTATIN
     Dosage: 20 MILLIGRAM
     Route: 048
  54. SIMVASTATIN [Suspect]
     Active Substance: SIMVASTATIN
     Dosage: 400 MICROGRAM
     Route: 048
  55. FOLIC ACID [Suspect]
     Active Substance: FOLIC ACID
     Indication: Product used for unknown indication
     Dosage: 5 MILLIGRAM, (ORAL SOLUTION)
     Route: 048
  56. FOLIC ACID [Suspect]
     Active Substance: FOLIC ACID
     Dosage: 5 MILLIGRAM, (ORAL SOLUTION)
     Route: 048
  57. FOLIC ACID [Suspect]
     Active Substance: FOLIC ACID
     Dosage: 5 MILLIGRAM, (ORAL SOLUTION)
     Route: 048
  58. FOLIC ACID [Suspect]
     Active Substance: FOLIC ACID
     Dosage: 5 MILLIGRAM, (ORAL SOLUTION)
     Route: 048
  59. FOLIC ACID [Suspect]
     Active Substance: FOLIC ACID
     Dosage: 5 MILLIGRAM, (TABLET)
     Route: 048
  60. FOLIC ACID [Suspect]
     Active Substance: FOLIC ACID
     Dosage: 5 MILLIGRAM, (TABLET)
     Route: 048
  61. FOLIC ACID [Suspect]
     Active Substance: FOLIC ACID
     Dosage: 5 MILLIGRAM, (TABLET)
     Route: 048
  62. FOLIC ACID [Suspect]
     Active Substance: FOLIC ACID
     Dosage: 5 MILLIGRAM
     Route: 065
  63. PHYLLOCONTIN [Suspect]
     Active Substance: AMINOPHYLLINE
     Indication: Product used for unknown indication
     Dosage: 400 MILLIGRAM, QD
     Route: 065
     Dates: start: 20100917
  64. PHYLLOCONTIN [Suspect]
     Active Substance: AMINOPHYLLINE
     Dosage: 400 MILLIGRAM, QD
     Route: 065
  65. DITIOCARB [Suspect]
     Active Substance: DITIOCARB
     Indication: Abdominal discomfort
     Dosage: 750 MILLIGRAM
     Route: 065
  66. GUANIDINE [Suspect]
     Active Substance: GUANIDINE
     Indication: Depression
     Dosage: 750 MILLIGRAM
     Route: 048
  67. GUANIDINE [Suspect]
     Active Substance: GUANIDINE
     Indication: Abdominal discomfort
     Dosage: 750 MILLIGRAM, QD (1,3-DIPHENYLGUANIDINE)
     Route: 065
  68. GUANIDINE [Suspect]
     Active Substance: GUANIDINE
     Dosage: UNK
     Route: 065
  69. GUANIDINE [Suspect]
     Active Substance: GUANIDINE
     Dosage: 750 MILLIGRAM, QD
     Route: 048
  70. CARBOCYSTEINE [Suspect]
     Active Substance: CARBOCYSTEINE
     Indication: Rheumatoid arthritis
     Dosage: 750 MILLIGRAM, DRUG ABUSE
     Route: 065
  71. CARBOCYSTEINE [Suspect]
     Active Substance: CARBOCYSTEINE
     Dosage: 750 MILLIGRAM, DRUG ABUSE
     Route: 065
     Dates: start: 20100917
  72. CARBOCYSTEINE [Suspect]
     Active Substance: CARBOCYSTEINE
     Dosage: 750 MILLIGRAM, QD, DRUG ABUSE
     Route: 048
     Dates: start: 20100917
  73. CIPROFLOXACIN [Suspect]
     Active Substance: CIPROFLOXACIN
     Indication: Rheumatoid arthritis
     Dosage: 1000 MILLIGRAM
     Route: 065
     Dates: start: 20100917
  74. CIPROFLOXACIN [Suspect]
     Active Substance: CIPROFLOXACIN
     Indication: Abdominal discomfort
     Dosage: 1000 MILLIGRAM, QD
     Route: 048
     Dates: start: 20100917
  75. CIPROFLOXACIN [Suspect]
     Active Substance: CIPROFLOXACIN
     Indication: Depression
  76. METHOTREXATE SODIUM [Suspect]
     Active Substance: METHOTREXATE SODIUM
     Indication: Rheumatoid arthritis
     Dosage: 17.5 MILLIGRAM, DRUG ABUSE
     Route: 065
     Dates: start: 20100917
  77. METHOTREXATE SODIUM [Suspect]
     Active Substance: METHOTREXATE SODIUM
     Dosage: 18 MILLIGRAM, DRUG ABUSE
     Route: 065
     Dates: start: 20100917
  78. METHOTREXATE SODIUM [Suspect]
     Active Substance: METHOTREXATE SODIUM
     Dosage: 17.5 MILLIGRAM, QD, DRUG ABUSE
     Route: 048
     Dates: start: 20100917
  79. ENBREL [Suspect]
     Active Substance: ETANERCEPT
     Indication: Rheumatoid arthritis
     Dosage: 50 MILLIGRAM, QD (SOLUTION FOR INJECTION IN PRE-FILLED PEN, MYCLIC PENS
     Route: 042
     Dates: start: 20100917
  80. DITIOCARB ZINC [Suspect]
     Active Substance: DITIOCARB ZINC
     Indication: Abdominal discomfort
     Dosage: 750 MILLIGRAM, QD
     Route: 065
  81. DITIOCARB ZINC [Suspect]
     Active Substance: DITIOCARB ZINC
     Indication: Depression
     Dosage: UNK UNK, QD
     Route: 065
  82. VENLAFAXINE HYDROCHLORIDE [Suspect]
     Active Substance: VENLAFAXINE HYDROCHLORIDE
     Indication: Depression
     Dosage: 225 MILLIGRAM, QD, DRUG ABUSE
     Route: 065
  83. VENLAFAXINE HYDROCHLORIDE [Suspect]
     Active Substance: VENLAFAXINE HYDROCHLORIDE
     Indication: Rheumatoid arthritis
  84. Charcoal,Activated [Concomitant]
     Indication: Product used for unknown indication
     Dosage: 750 MILLIGRAM
     Route: 065
  85. BENDROFLUMETHIAZIDE [Concomitant]
     Active Substance: BENDROFLUMETHIAZIDE
     Indication: Depression
     Dosage: UNK
     Route: 065
  86. BENDROFLUMETHIAZIDE [Concomitant]
     Active Substance: BENDROFLUMETHIAZIDE
     Indication: Pituitary tumour
  87. CETIRIZINE [Concomitant]
     Active Substance: CETIRIZINE HYDROCHLORIDE
     Indication: Abdominal discomfort
     Dosage: UNK
     Route: 065
  88. CETIRIZINE [Concomitant]
     Active Substance: CETIRIZINE HYDROCHLORIDE
     Indication: Abdominal discomfort
  89. CABERGOLINE [Concomitant]
     Active Substance: CABERGOLINE
     Indication: Empty sella syndrome
     Dosage: UNK
     Route: 065
  90. CABERGOLINE [Concomitant]
     Active Substance: CABERGOLINE
     Indication: Pituitary tumour
  91. ORUVAIL [Concomitant]
     Active Substance: KETOPROFEN
     Indication: Empty sella syndrome
     Dosage: UNK
     Route: 065
  92. LEVOTHYROXINE [Concomitant]
     Active Substance: LEVOTHYROXINE
     Indication: Abdominal discomfort
     Dosage: UNK
     Route: 065
  93. EZETIMIBE [Concomitant]
     Active Substance: EZETIMIBE
     Indication: Product used for unknown indication
     Dosage: UNK
     Route: 065

REACTIONS (19)
  - COVID-19 [Fatal]
  - Condition aggravated [Fatal]
  - Lung neoplasm malignant [Fatal]
  - Schizophrenia [Fatal]
  - Radiation inflammation [Fatal]
  - Inflammation [Fatal]
  - Arthropathy [Fatal]
  - Lower respiratory tract infection [Fatal]
  - Pulmonary pain [Fatal]
  - Abdominal discomfort [Fatal]
  - Knee arthroplasty [Fatal]
  - Arthropathy [Unknown]
  - Rash [Fatal]
  - Product dose omission issue [Fatal]
  - Overdose [Fatal]
  - Drug abuse [Fatal]
  - Intentional product misuse [Fatal]
  - Overdose [Fatal]
  - Off label use [Fatal]

NARRATIVE: CASE EVENT DATE: 20200401
